FAERS Safety Report 6972249-5 (Version None)
Quarter: 2010Q3

REPORT INFORMATION
  Report Type: 
  Country: None (occurrence: None)
  Receive Date: 20100909
  Receipt Date: 20100830
  Transmission Date: 20110219
  Serious: Yes (Congenital Anomaly)
  Sender: FDA-Public Use
  Company Number: SE-JNJFOC-20100900774

PATIENT

DRUGS (2)
  1. TOPIRAMATE [Suspect]
     Indication: DRUG EXPOSURE DURING PREGNANCY
     Route: 064
  2. VALPROIC ACID [Suspect]
     Indication: DRUG EXPOSURE DURING PREGNANCY

REACTIONS (2)
  - ATRIAL SEPTAL DEFECT [None]
  - PULMONARY ARTERY STENOSIS CONGENITAL [None]
